FAERS Safety Report 8517794-6 (Version None)
Quarter: 2012Q3

REPORT INFORMATION
  Report Type: 
  Country: None (occurrence: None)
  Receive Date: 20120712
  Receipt Date: 20120712
  Transmission Date: 20120928
  Serious: Yes (Life-Threatening, Hospitalization, Disabling, Other)
  Sender: FDA-Public Use
  Company Number: None

PATIENT
  Age: 62 Year
  Sex: Female
  Weight: 90.7194 kg

DRUGS (2)
  1. PRILOSEC [Suspect]
     Indication: PROPHYLAXIS
     Dosage: DAILY PO
     Route: 048
     Dates: start: 20110601, end: 20120101
  2. PRILOSEC [Suspect]
     Indication: HYPERCHLORAEMIA
     Dosage: DAILY PO
     Route: 048
     Dates: start: 20110601, end: 20120101

REACTIONS (14)
  - DYSPHAGIA [None]
  - MUSCULOSKELETAL STIFFNESS [None]
  - OEDEMA PERIPHERAL [None]
  - CONSTIPATION [None]
  - DEHYDRATION [None]
  - APHAGIA [None]
  - BLOOD MAGNESIUM DECREASED [None]
  - JOINT STIFFNESS [None]
  - LOCALISED OEDEMA [None]
  - FLUID INTAKE REDUCED [None]
  - ANAEMIA [None]
  - BLOOD POTASSIUM DECREASED [None]
  - IMMOBILE [None]
  - MASTICATION DISORDER [None]
